FAERS Safety Report 23830822 (Version 2)
Quarter: 2024Q2

REPORT INFORMATION
  Report Type: Report from Study
  Country: US (occurrence: US)
  Receive Date: 20240508
  Receipt Date: 20240610
  Transmission Date: 20240716
  Serious: Yes (Hospitalization)
  Sender: FDA-Public Use
  Company Number: US-BoehringerIngelheim-2024-BI-012715

PATIENT
  Sex: Female

DRUGS (2)
  1. OFEV [Suspect]
     Active Substance: NINTEDANIB
     Indication: Idiopathic pulmonary fibrosis
     Route: 048
     Dates: start: 202311, end: 20240328
  2. POTASSIUM CHLORIDE [Suspect]
     Active Substance: POTASSIUM CHLORIDE
     Indication: Hypokalaemia

REACTIONS (7)
  - Hypokalaemia [Recovered/Resolved]
  - Dehydration [Recovered/Resolved]
  - Diarrhoea haemorrhagic [Recovered/Resolved]
  - Mucous stools [Recovered/Resolved]
  - Diarrhoea [Not Recovered/Not Resolved]
  - Constipation [Not Recovered/Not Resolved]
  - Bloody discharge [Unknown]
